FAERS Safety Report 7613508-2 (Version None)
Quarter: 2011Q3

REPORT INFORMATION
  Report Type: 
  Country: None (occurrence: None)
  Receive Date: 20110708
  Receipt Date: 20110701
  Transmission Date: 20111222
  Serious: Yes (Other)
  Sender: FDA-Public Use
  Company Number: A0934638A

PATIENT
  Age: 43 Year
  Sex: Male

DRUGS (1)
  1. UREA PEROXIDE [Suspect]
     Dosage: AURAL
     Dates: start: 20110627

REACTIONS (3)
  - EAR INFECTION [None]
  - EAR PAIN [None]
  - DEAFNESS [None]
